FAERS Safety Report 9180599 (Version 3)
Quarter: 2013Q2

REPORT INFORMATION
  Report Type: Spontaneous
  Country: AU (occurrence: None)
  Receive Date: 20130320
  Receipt Date: 20130404
  Transmission Date: 20140414
  Serious: Yes (Hospitalization, Other)
  Sender: FDA-Public Use
  Company Number: 2013000048

PATIENT
  Age: 54 Year
  Sex: Male

DRUGS (6)
  1. ACEON [Suspect]
     Indication: CARDIAC FAILURE
     Route: 048
     Dates: start: 2012, end: 2012
  2. BISOPROLOL (BISOPROLOL) [Concomitant]
  3. LASIX (FUROSEMIDE) [Concomitant]
  4. AMIODARONE (AMIODARONE) [Concomitant]
  5. ALDACTONE (SPIRONOLACTONE) [Concomitant]
  6. DIGOXIN (DIGOXIN) [Concomitant]

REACTIONS (4)
  - Depression suicidal [None]
  - Dizziness [None]
  - Nausea [None]
  - Asthenia [None]
